FAERS Safety Report 22160681 (Version 2)
Quarter: 2023Q2

REPORT INFORMATION
  Report Type: Spontaneous
  Country: US (occurrence: US)
  Receive Date: 20230331
  Receipt Date: 20230504
  Transmission Date: 20230721
  Serious: Yes (Disabling, Other)
  Sender: FDA-Public Use
  Company Number: US-FreseniusKabi-FK202303894

PATIENT
  Age: 57 Year
  Sex: Male

DRUGS (1)
  1. FLUOROURACIL [Suspect]
     Active Substance: FLUOROURACIL
     Indication: Product used for unknown indication
     Dosage: 0.5 MG, ONE TIME (RIGHT EYE)
     Route: 057
     Dates: start: 20230224, end: 20230224

REACTIONS (8)
  - Toxic anterior segment syndrome [Recovering/Resolving]
  - Corneal scar [Unknown]
  - Eye swelling [Recovering/Resolving]
  - Off label use [Not Recovered/Not Resolved]
  - Eye pain [Recovering/Resolving]
  - Eyelid oedema [Recovering/Resolving]
  - Photophobia [Recovering/Resolving]
  - Headache [Not Recovered/Not Resolved]

NARRATIVE: CASE EVENT DATE: 20230228
